FAERS Safety Report 7354847-2 (Version None)
Quarter: 2011Q1

REPORT INFORMATION
  Report Type: 
  Country: None (occurrence: None)
  Receive Date: 20110311
  Receipt Date: 20110311
  Transmission Date: 20110831
  Serious: No
  Sender: FDA-Public Use
  Company Number: None

PATIENT
  Age: 86 Year
  Sex: Female
  Weight: 81.6475 kg

DRUGS (1)
  1. PRADAXA [Suspect]
     Dosage: 1 CAP. BID ORAL
     Route: 048

REACTIONS (2)
  - CHROMATURIA [None]
  - VAGINAL HAEMORRHAGE [None]
